FAERS Safety Report 9899891 (Version 3)
Quarter: 2014Q2

REPORT INFORMATION
  Report Type: Report from Study
  Country: DE (occurrence: DE)
  Receive Date: 20140214
  Receipt Date: 20140410
  Transmission Date: 20141212
  Serious: Yes (Hospitalization)
  Sender: FDA-Public Use
  Company Number: DE-UCBSA-112023

PATIENT
  Sex: 0

DRUGS (19)
  1. NEUPRO [Suspect]
     Indication: PARKINSON^S DISEASE
     Dates: start: 20110210, end: 20110216
  2. NEUPRO [Suspect]
     Indication: PARKINSON^S DISEASE
     Dates: start: 20110217, end: 20110223
  3. NEUPRO [Suspect]
     Indication: PARKINSON^S DISEASE
     Dates: start: 20110224, end: 20110302
  4. NEUPRO [Suspect]
     Indication: PARKINSON^S DISEASE
     Dates: start: 20110303, end: 20110508
  5. NEUPRO [Suspect]
     Indication: PARKINSON^S DISEASE
     Dates: start: 20110509, end: 20110512
  6. NEUPRO [Suspect]
     Indication: PARKINSON^S DISEASE
     Dates: start: 20110513, end: 20131126
  7. LEVODOPA [Concomitant]
     Indication: PARKINSON^S DISEASE
     Dates: start: 20111026, end: 20111122
  8. LEVODOPA [Concomitant]
     Indication: PARKINSON^S DISEASE
     Dates: start: 20111123, end: 20130604
  9. LEVODOPA [Concomitant]
     Indication: PARKINSON^S DISEASE
     Dosage: OTHER 1,5-1.5-1
     Dates: start: 20130605, end: 201311
  10. MADOPAR [Concomitant]
     Indication: PARKINSON^S DISEASE
     Dosage: 100/25MG
     Dates: start: 201311, end: 20140127
  11. BISOPROLOL [Concomitant]
     Indication: HYPERTENSION
     Dates: start: 200806
  12. DELIX [Concomitant]
     Indication: HYPERTENSION
     Dates: start: 20110119
  13. HCT [Concomitant]
     Indication: HYPERTENSION
     Dates: end: 201311
  14. HCT [Concomitant]
     Indication: HYPERTENSION
     Dates: start: 201311
  15. VALORON [Concomitant]
     Indication: PAIN
     Dosage: SINGLE DOSE: 50/4 MG, TWICE DAILY
     Dates: start: 201303, end: 2013
  16. IBUPROFEN [Concomitant]
     Indication: PAIN
     Dates: start: 201303, end: 2013
  17. PANTOZOL [Concomitant]
     Indication: PROPHYLAXIS AGAINST GASTROINTESTINAL ULCER
     Dates: start: 201303, end: 2013
  18. FERRO SANOL DUODENAL [Concomitant]
     Indication: ANAEMIA
     Dosage: TWICE DAILY
     Dates: start: 201303, end: 2013
  19. LEVODOPA COMP [Concomitant]
     Indication: PARKINSON^S DISEASE
     Dosage: 100/25MG 2-2-1-1
     Dates: start: 201311

REACTIONS (1)
  - Fall [Recovered/Resolved]
